FAERS Safety Report 4273366-3 (Version None)
Quarter: 2004Q1

REPORT INFORMATION
  Report Type: 
  Country: None (occurrence: None)
  Receive Date: 20040115
  Receipt Date: 20040115
  Transmission Date: 20041129
  Serious: Yes (Life-Threatening, Hospitalization)
  Sender: FDA-Public Use
  Company Number: None

PATIENT
  Age: 51 Year
  Sex: Female
  Weight: 77.1115 kg

DRUGS (1)
  1. ALEVE [Suspect]
     Dosage: 220 MG MOUTH

REACTIONS (3)
  - CHEST DISCOMFORT [None]
  - GENERALISED ERYTHEMA [None]
  - PRURITUS [None]
